FAERS Safety Report 6335033-1 (Version None)
Quarter: 2009Q3

REPORT INFORMATION
  Report Type: 
  Country: None (occurrence: None)
  Receive Date: 20090831
  Receipt Date: 20090831
  Transmission Date: 20100115
  Serious: Yes (Other)
  Sender: FDA-Public Use
  Company Number: LK-ROXANE LABORATORIES, INC.-2009-DE-05353GD

PATIENT
  Sex: Female

DRUGS (3)
  1. SERTRALINE HCL [Suspect]
     Indication: DEPRESSION
     Dosage: 50 MG
  2. HERBAL MEDICINAL MIXTURES [Suspect]
     Indication: BACK PAIN
     Route: 061
     Dates: start: 20060501
  3. HERBAL MEDICINAL MIXTURES [Suspect]
     Dates: start: 20070501

REACTIONS (3)
  - DISEASE RECURRENCE [None]
  - DRUG INTERACTION [None]
  - SUICIDE ATTEMPT [None]
